FAERS Safety Report 5681121-2 (Version None)
Quarter: 2008Q1

REPORT INFORMATION
  Report Type: 
  Country: None (occurrence: None)
  Receive Date: 20080325
  Receipt Date: 20080313
  Transmission Date: 20080703
  Serious: Yes (Hospitalization)
  Sender: FDA-Public Use
  Company Number: 2008BI006863

PATIENT
  Age: 52 Year
  Sex: Male
  Weight: 75 kg

DRUGS (3)
  1. AVONEX [Suspect]
     Indication: MULTIPLE SCLEROSIS
     Dosage: 30 UG; QW; IM
     Route: 030
     Dates: start: 20070301
  2. BACLOFEN [Concomitant]
  3. IBUPROFEN [Concomitant]

REACTIONS (6)
  - ARTHRALGIA [None]
  - INFLUENZA LIKE ILLNESS [None]
  - JOINT RANGE OF MOTION DECREASED [None]
  - KNEE ARTHROPLASTY [None]
  - MULTIPLE SCLEROSIS RELAPSE [None]
  - POSTOPERATIVE THROMBOSIS [None]
